FAERS Safety Report 7897939-1 (Version None)
Quarter: 2011Q4

REPORT INFORMATION
  Report Type: 
  Country: None (occurrence: None)
  Receive Date: 20111107
  Receipt Date: 20111031
  Transmission Date: 20120403
  Serious: Yes (Other)
  Sender: FDA-Public Use
  Company Number: US-ABBOTT-11P-163-0870543-00

PATIENT
  Sex: Female
  Weight: 100.79 kg

DRUGS (16)
  1. ASPIRIN [Concomitant]
     Indication: PAIN
  2. METFORMIN HCL [Concomitant]
     Indication: DIABETES MELLITUS
  3. OXYCODONE HCL [Concomitant]
     Indication: PAIN
  4. TRILIPIX [Concomitant]
     Indication: BLOOD CHOLESTEROL INCREASED
  5. XANAX [Concomitant]
     Indication: ANXIETY
  6. PLAVIX [Concomitant]
     Indication: ANTICOAGULANT THERAPY
  7. BENICAR [Concomitant]
     Indication: HYPERTENSION
  8. HUMIRA [Suspect]
     Indication: PSORIASIS
     Route: 058
     Dates: start: 20080101
  9. PROPRANOLOL [Concomitant]
     Indication: HYPERTENSION
  10. FISH OIL [Concomitant]
     Indication: ARTHROPATHY
  11. LEVOTHYROXINE SODIUM [Concomitant]
     Indication: HYPOTHYROIDISM
  12. ZANTAC [Concomitant]
     Indication: GASTROOESOPHAGEAL REFLUX DISEASE
  13. FLU VACCINE [Concomitant]
     Indication: PROPHYLAXIS
     Dates: start: 20111001, end: 20111001
  14. FLEXERIL [Concomitant]
     Indication: MUSCLE SPASMS
  15. VITAMIN D [Concomitant]
     Indication: VITAMIN SUPPLEMENTATION
  16. HUMIRA [Suspect]
     Indication: PSORIATIC ARTHROPATHY

REACTIONS (2)
  - ANTIPHOSPHOLIPID ANTIBODIES POSITIVE [None]
  - DRY MOUTH [None]
